FAERS Safety Report 10386012 (Version 1)
Quarter: 2014Q1

REPORT INFORMATION
  Report Type: Spontaneous
  Country: US (occurrence: None)
  Receive Date: 20140306
  Receipt Date: 20140306
  Transmission Date: 20141002
  Serious: Yes (Other)
  Sender: FDA-Public Use
  Company Number: 163-21880-13101672

PATIENT
  Age: 62 Year
  Sex: Male

DRUGS (14)
  1. REVLIMIB (LENALIDOMIDE) (10 MILLIGRAM, CAPSULES) [Suspect]
     Indication: PLASMA CELL MYELOMA
     Route: 048
     Dates: start: 20120130
  2. AMBIEN (ZOLPIDEM TARTRATE) (TABLETS) [Concomitant]
  3. TYLENOL (PARACETAMOL) (TABLETS) [Concomitant]
  4. PERCOCET (OXYCOCET) (TABLETS) [Concomitant]
  5. SENNA (TABLETS) [Concomitant]
  6. WELLBUTRIN (BUPROPION HYDROCHLORIDE) [Concomitant]
  7. CALCIUM CITRATE + D (CALCIUM CITRATE W/ COLECALCIFEROL) [Concomitant]
  8. CELEXA (CITALOPRAM HYDROBROMIDE) [Concomitant]
  9. SPIRIVA (TIOTROPIUM BROMIDE) [Concomitant]
  10. ABILIFY (ARIPIPRAZOLE) [Concomitant]
  11. ATENOLOL [Concomitant]
  12. SINGULAIR (MONTELUKAST) [Concomitant]
  13. XANAX (ALPRAZOLAM) [Concomitant]
  14. ASPIRINE (ACETYLSALICYLIC ACID) [Concomitant]

REACTIONS (1)
  - Cataract [None]
